FAERS Safety Report 7620992-7 (Version None)
Quarter: 2011Q3

REPORT INFORMATION
  Report Type: 
  Country: None (occurrence: None)
  Receive Date: 20110719
  Receipt Date: 20100903
  Transmission Date: 20111222
  Serious: No
  Sender: FDA-Public Use
  Company Number: US-KINGPHARMUSA00001-K201001116

PATIENT
  Sex: Female
  Weight: 88.435 kg

DRUGS (2)
  1. LEVOXYL [Suspect]
     Indication: THYROID DISORDER
     Dosage: 100 MCG, QD
     Route: 048
     Dates: start: 20100601
  2. VITAMIN TAB [Concomitant]
     Indication: SUPPLEMENTATION THERAPY
     Dosage: UNK

REACTIONS (3)
  - EMOTIONAL DISORDER [None]
  - DRUG INEFFECTIVE [None]
  - WEIGHT INCREASED [None]
